FAERS Safety Report 9834989 (Version 1)
Quarter: 2014Q1

REPORT INFORMATION
  Report Type: Spontaneous
  Country: US (occurrence: US)
  Receive Date: 20140122
  Receipt Date: 20140122
  Transmission Date: 20141002
  Serious: No
  Sender: FDA-Public Use
  Company Number: US-BAUSCH-BL-2013-006699

PATIENT
  Age: 80 Year
  Sex: Female
  Weight: 102.15 kg

DRUGS (2)
  1. ALAWAY (KETOTIFEN FUMARATE OPHTHALMIC SOLUTION) [Suspect]
     Indication: EYE PRURITUS
     Dosage: ONCE OR TWICE A DAY
     Route: 047
     Dates: start: 20131103, end: 20131115
  2. ALAWAY (KETOTIFEN FUMARATE OPHTHALMIC SOLUTION) [Suspect]
     Indication: DRY EYE

REACTIONS (2)
  - Off label use [Recovered/Resolved]
  - Erythema of eyelid [Recovered/Resolved]
